FAERS Safety Report 9782728 (Version 1)
Quarter: 2013Q4

REPORT INFORMATION
  Report Type: Report from Study
  Country: TN (occurrence: TN)
  Receive Date: 20131226
  Receipt Date: 20131226
  Transmission Date: 20140711
  Serious: Yes (Death)
  Sender: FDA-Public Use
  Company Number: TN-SA-2013SA132008

PATIENT
  Age: 77 Year
  Sex: Male

DRUGS (7)
  1. PLAVIX [Suspect]
     Indication: MYOCARDIAL INFARCTION
     Route: 048
     Dates: start: 20121210, end: 20131026
  2. ASPEGIC [Concomitant]
     Route: 048
     Dates: end: 20131026
  3. MONICOR [Concomitant]
     Route: 048
     Dates: end: 20131026
  4. COVERSYL [Concomitant]
     Route: 048
     Dates: end: 20131026
  5. TAHOR [Concomitant]
     Dates: end: 20131026
  6. LASILIX [Concomitant]
     Route: 048
     Dates: end: 20131026
  7. AMARYL [Concomitant]
     Route: 048
     Dates: end: 20131026

REACTIONS (2)
  - Coronary artery stenosis [Fatal]
  - Cardiac failure [Fatal]
